FAERS Safety Report 4503999-8 (Version None)
Quarter: 2004Q3

REPORT INFORMATION
  Report Type: 
  Country: None (occurrence: None)
  Receive Date: 20040927
  Receipt Date: 20040629
  Transmission Date: 20050211
  Serious: No
  Sender: FDA-Public Use
  Company Number: USA040671451

PATIENT
  Age: 6 Year
  Sex: Male
  Weight: 20 kg

DRUGS (4)
  1. STRATTERA [Suspect]
     Indication: ATTENTION DEFICIT/HYPERACTIVITY DISORDER
     Dosage: 25 MG DAY
     Dates: start: 20040627
  2. MULTI-VITAMIN [Concomitant]
  3. FLAXSEED OIL [Concomitant]
  4. METADATE/UDA/(METHYLPHENIDATE HYDROCHLORIDE) [Concomitant]

REACTIONS (2)
  - ANGER [None]
  - IRRITABILITY [None]
